FAERS Safety Report 10625240 (Version 2)
Quarter: 2014Q4

REPORT INFORMATION
  Report Type: Report from Study
  Country: US (occurrence: US)
  Receive Date: 20141204
  Receipt Date: 20141208
  Transmission Date: 20150529
  Serious: Yes (Other)
  Sender: FDA-Public Use
  Company Number: US-ROCHE-1500743

PATIENT
  Sex: Female
  Weight: 71.73 kg

DRUGS (1)
  1. LUCENTIS [Suspect]
     Active Substance: RANIBIZUMAB
     Indication: AGE-RELATED MACULAR DEGENERATION
     Dosage: LEFT EYE
     Route: 050
     Dates: start: 201411

REACTIONS (4)
  - Eyelids pruritus [Unknown]
  - Ocular hyperaemia [Unknown]
  - Eye pain [Unknown]
  - Eye irritation [Unknown]
